FAERS Safety Report 9232430 (Version 2)
Quarter: 2013Q2

REPORT INFORMATION
  Report Type: Spontaneous
  Country: US (occurrence: US)
  Receive Date: 20130416
  Receipt Date: 20130501
  Transmission Date: 20140414
  Serious: No
  Sender: FDA-Public Use
  Company Number: US-BIOGENIDEC-2013BI031451

PATIENT
  Age: 25 Year
  Sex: Female

DRUGS (2)
  1. AVONEX [Suspect]
     Indication: MULTIPLE SCLEROSIS
     Route: 030
     Dates: start: 20121024, end: 2012
  2. REBIF [Concomitant]

REACTIONS (4)
  - Migraine [Recovered/Resolved]
  - Central nervous system lesion [Unknown]
  - Influenza like illness [Recovered/Resolved]
  - Injection site pain [Recovered/Resolved]
